FAERS Safety Report 9863175 (Version 3)
Quarter: 2014Q1

REPORT INFORMATION
  Report Type: Spontaneous
  Country: AT (occurrence: AT)
  Receive Date: 20140203
  Receipt Date: 20140327
  Transmission Date: 20141002
  Serious: Yes (Other)
  Sender: FDA-Public Use
  Company Number: AT-GLAXOSMITHKLINE-B0965489A

PATIENT
  Sex: Female
  Weight: 61 kg

DRUGS (4)
  1. BENLYSTA [Suspect]
     Indication: PRODUCT USED FOR UNKNOWN INDICATION
     Route: 065
     Dates: end: 20140207
  2. CELLCEPT [Concomitant]
  3. CORTISON [Concomitant]
  4. RITUXIMAB [Concomitant]
     Indication: OFF LABEL USE

REACTIONS (3)
  - Glomerulonephritis membranous [Unknown]
  - Lupus nephritis [Unknown]
  - Treatment noncompliance [Unknown]
